FAERS Safety Report 5206118-8 (Version None)
Quarter: 2007Q1

REPORT INFORMATION
  Report Type: 
  Country: None (occurrence: None)
  Receive Date: 20070108
  Receipt Date: 20061221
  Transmission Date: 20070707
  Serious: Yes (Death, Hospitalization)
  Sender: FDA-Public Use
  Company Number: 8020943

PATIENT
  Age: 24 Year
  Sex: Female

DRUGS (6)
  1. KEPPRA [Suspect]
     Indication: DRUG USE FOR UNKNOWN INDICATION
  2. PYRIMETHAMINE TAB [Suspect]
     Indication: DRUG USE FOR UNKNOWN INDICATION
  3. LEUCOVORIN CALCIUM [Suspect]
     Indication: DRUG USE FOR UNKNOWN INDICATION
  4. DAPSONE [Suspect]
     Indication: DRUG USE FOR UNKNOWN INDICATION
  5. AMPICILLIN [Suspect]
     Indication: DRUG USE FOR UNKNOWN INDICATION
  6. FLUCONAZOLE [Suspect]
     Indication: DRUG USE FOR UNKNOWN INDICATION

REACTIONS (35)
  - ASTHENIA [None]
  - BRAIN DEATH [None]
  - BRAIN HERNIATION [None]
  - CONDITION AGGRAVATED [None]
  - CONFUSIONAL STATE [None]
  - CULTURE URINE POSITIVE [None]
  - DEPRESSED LEVEL OF CONSCIOUSNESS [None]
  - DISEASE PROGRESSION [None]
  - DYSARTHRIA [None]
  - DYSPHASIA [None]
  - ENCEPHALITIS [None]
  - ENTEROCOCCAL INFECTION [None]
  - EXTENSOR PLANTAR RESPONSE [None]
  - GAIT DISTURBANCE [None]
  - GRAND MAL CONVULSION [None]
  - GRANULOMA [None]
  - HERPES VIRUS INFECTION [None]
  - HYPOAESTHESIA ORAL [None]
  - HYPOTONIA [None]
  - INTRACRANIAL PRESSURE INCREASED [None]
  - KLEBSIELLA INFECTION [None]
  - MEMORY IMPAIRMENT [None]
  - NECROSIS [None]
  - NERVOUS SYSTEM DISORDER [None]
  - ORAL CANDIDIASIS [None]
  - PARAESTHESIA [None]
  - PHYSICAL EXAMINATION ABNORMAL [None]
  - POSTURING [None]
  - PSEUDOMONAS INFECTION [None]
  - PSYCHOMOTOR RETARDATION [None]
  - RESPIRATORY DISORDER [None]
  - SPUTUM CULTURE POSITIVE [None]
  - SYSTEMIC LUPUS ERYTHEMATOSUS [None]
  - TREATMENT NONCOMPLIANCE [None]
  - TREMOR [None]
